FAERS Safety Report 7340951-1 (Version None)
Quarter: 2011Q1

REPORT INFORMATION
  Report Type: 
  Country: None (occurrence: None)
  Receive Date: 20110309
  Receipt Date: 20100715
  Transmission Date: 20110831
  Serious: No
  Sender: FDA-Public Use
  Company Number: US-ABBOTT-10P-163-0658447-00

PATIENT
  Sex: Female

DRUGS (2)
  1. LUPRON DEPOT [Suspect]
     Indication: UTERINE LEIOMYOMA
     Dates: start: 20080101
  2. LUPRON DEPOT [Suspect]
     Indication: MENORRHAGIA

REACTIONS (3)
  - HOT FLUSH [None]
  - HYPERTENSION [None]
  - WEIGHT INCREASED [None]
